FAERS Safety Report 5338671-8 (Version None)
Quarter: 2007Q2

REPORT INFORMATION
  Report Type: 
  Country: None (occurrence: None)
  Receive Date: 20070530
  Receipt Date: 20070327
  Transmission Date: 20071010
  Serious: Yes (Other)
  Sender: FDA-Public Use
  Company Number: A0644811A

PATIENT
  Sex: Male

DRUGS (1)
  1. VENTOLIN [Suspect]
     Indication: DRUG USE FOR UNKNOWN INDICATION
     Route: 055

REACTIONS (1)
  - ASTHMA [None]
